FAERS Safety Report 7988329-1 (Version None)
Quarter: 2011Q4

REPORT INFORMATION
  Report Type: 
  Country: None (occurrence: None)
  Receive Date: 20111216
  Receipt Date: 20111201
  Transmission Date: 20120403
  Serious: Yes (Hospitalization)
  Sender: FDA-Public Use
  Company Number: NL-WATSON-2011-21577

PATIENT
  Age: 41 Year
  Sex: Male

DRUGS (2)
  1. VALPROATE SODIUM [Suspect]
     Indication: EPILEPSY
     Dosage: 1 G, BID
  2. VALPROATE SODIUM [Suspect]
     Dosage: 100 TABLETS OF 1 G SINGLE INGESTION

REACTIONS (15)
  - OVERDOSE [None]
  - COMA [None]
  - THROMBOCYTOPENIA [None]
  - HYPERNATRAEMIA [None]
  - CONVULSION [None]
  - METABOLIC ACIDOSIS [None]
  - PARADOXICAL DRUG REACTION [None]
  - RESPIRATORY DEPRESSION [None]
  - HYPOTENSION [None]
  - HYPOTHERMIA [None]
  - ENCEPHALOPATHY [None]
  - RHABDOMYOLYSIS [None]
  - LEUKOPENIA [None]
  - HYPERAMMONAEMIA [None]
  - LIPASE INCREASED [None]
